FAERS Safety Report 13913179 (Version 1)
Quarter: 2017Q3

REPORT INFORMATION
  Report Type: Spontaneous
  Country: US (occurrence: US)
  Receive Date: 20170828
  Receipt Date: 20170828
  Transmission Date: 20171127
  Serious: No
  Sender: FDA-Public Use
  Company Number: US-ROCHE-1129115

PATIENT
  Sex: Female
  Weight: 19.2 kg

DRUGS (1)
  1. NUTROPIN [Suspect]
     Active Substance: SOMATROPIN
     Indication: GROWTH HORMONE DEFICIENCY
     Route: 058
     Dates: start: 19971020

REACTIONS (3)
  - Pain in extremity [Unknown]
  - Crohn^s disease [Unknown]
  - Headache [Unknown]
